FAERS Safety Report 6820922-1 (Version None)
Quarter: 2010Q3

REPORT INFORMATION
  Report Type: 
  Country: None (occurrence: None)
  Receive Date: 20100707
  Receipt Date: 20070827
  Transmission Date: 20110219
  Serious: No
  Sender: FDA-Public Use
  Company Number: US-PFIZER INC-2007071087

PATIENT
  Sex: Male
  Weight: 71.67 kg

DRUGS (8)
  1. ZOLOFT [Suspect]
     Indication: DEPRESSION
     Dates: start: 20070820, end: 20070824
  2. LEXAPRO [Suspect]
     Indication: DEPRESSION
  3. PANCRELIPASE [Concomitant]
  4. REGLAN [Concomitant]
  5. ERYTHROMYCIN [Concomitant]
  6. VITAMINS [Concomitant]
  7. CORAL CALCIUM [Concomitant]
  8. AMBIEN [Concomitant]

REACTIONS (1)
  - MUSCLE SPASMS [None]
